FAERS Safety Report 12945494 (Version 2)
Quarter: 2016Q4

REPORT INFORMATION
  Report Type: Spontaneous
  Country: HU (occurrence: HU)
  Receive Date: 20161115
  Receipt Date: 20161123
  Transmission Date: 20170207
  Serious: No
  Sender: FDA-Public Use
  Company Number: HU-ALLERGAN-1676130US

PATIENT
  Age: 50 Year
  Sex: Female

DRUGS (1)
  1. LEVOSERT [Suspect]
     Active Substance: LEVONORGESTREL
     Indication: CONTRACEPTION
     Dosage: 52MG
     Route: 015
     Dates: start: 20160613

REACTIONS (3)
  - Menorrhagia [Unknown]
  - Weight increased [Unknown]
  - Headache [Unknown]
